FAERS Safety Report 8287589-X (Version None)
Quarter: 2012Q2

REPORT INFORMATION
  Report Type: 
  Country: None (occurrence: None)
  Receive Date: 20120416
  Receipt Date: 20120409
  Transmission Date: 20120825
  Serious: Yes (Hospitalization, Other)
  Sender: FDA-Public Use
  Company Number: PHHY2012AR030878

PATIENT
  Sex: Male

DRUGS (1)
  1. AFINITOR [Suspect]
     Dosage: 10 MG, DAILY
     Route: 048

REACTIONS (5)
  - BLISTER [None]
  - TOXICITY TO VARIOUS AGENTS [None]
  - ACUTE PULMONARY OEDEMA [None]
  - PAIN [None]
  - PALMAR-PLANTAR ERYTHRODYSAESTHESIA SYNDROME [None]
